FAERS Safety Report 5337064-7 (Version None)
Quarter: 2007Q2

REPORT INFORMATION
  Report Type: 
  Country: None (occurrence: None)
  Receive Date: 20070529
  Receipt Date: 20070515
  Transmission Date: 20071010
  Serious: Yes (Hospitalization)
  Sender: FDA-Public Use
  Company Number: US-ELI_LILLY_AND_COMPANY-US200705004243

PATIENT
  Age: 45 Year
  Sex: Female

DRUGS (6)
  1. CYMBALTA [Suspect]
     Indication: DEPRESSION
     Dosage: 60 MG, UNK
     Dates: start: 20061001, end: 20070201
  2. AMBIEN [Concomitant]
     Indication: INSOMNIA
     Dosage: 10 MG, UNK
     Dates: start: 20060601, end: 20070301
  3. KLONOPIN [Concomitant]
     Indication: NEURALGIA
     Dosage: 1 MG, UNK
     Dates: start: 20061101
  4. SOMA [Concomitant]
     Indication: ARTHRALGIA
     Dosage: 350 MG, UNK
     Dates: start: 20061101
  5. REGLAN [Concomitant]
     Indication: GASTROOESOPHAGEAL REFLUX DISEASE
     Dosage: 10 MG, UNK
     Dates: start: 20060901, end: 20070401
  6. NEXIUM [Concomitant]
     Indication: GASTROOESOPHAGEAL REFLUX DISEASE
     Dosage: 40 MG, DAILY (1/D)
     Dates: start: 20050601

REACTIONS (3)
  - DEPRESSED MOOD [None]
  - NEGATIVE THOUGHTS [None]
  - SUICIDAL IDEATION [None]
